FAERS Safety Report 7782522-9 (Version None)
Quarter: 2011Q3

REPORT INFORMATION
  Report Type: 
  Country: None (occurrence: None)
  Receive Date: 20110928
  Receipt Date: 20110915
  Transmission Date: 20111222
  Serious: Yes (Hospitalization)
  Sender: FDA-Public Use
  Company Number: CH-ELI_LILLY_AND_COMPANY-CH201109006760

PATIENT
  Age: 62 Year
  Sex: Female

DRUGS (10)
  1. ZYPREXA [Suspect]
     Dosage: 10 MG, QD
     Route: 048
     Dates: start: 20110309
  2. FLUVOXAMINE MALEATE [Concomitant]
     Dosage: 200 MG, EACH MORNING
     Route: 048
  3. ASPIRIN [Concomitant]
     Dosage: 100 MG, QD
     Route: 048
  4. INDERAL [Concomitant]
     Dosage: 30 MG, QD
     Route: 048
  5. ZYPREXA [Suspect]
     Dosage: 20 MG, QD
     Route: 048
     Dates: start: 20110202, end: 20110308
  6. DEPAKENE [Concomitant]
     Dosage: 1500 MG, QD
     Route: 048
  7. CONDROSULF [Concomitant]
     Dosage: 800 MG, QD
     Route: 048
  8. ZYPREXA [Suspect]
     Dosage: 10 MG, QD
     Route: 048
     Dates: end: 20110201
  9. LITHIUM CARBONATE [Concomitant]
     Dosage: 990 MG, QD
  10. LEVOTHYROXINE SODIUM [Concomitant]
     Dosage: 25 UG, QD
     Route: 048

REACTIONS (3)
  - CONFUSIONAL STATE [None]
  - APHASIA [None]
  - DRUG INTERACTION [None]
